FAERS Safety Report 9498555 (Version 1)
Quarter: 2013Q3

REPORT INFORMATION
  Report Type: Spontaneous
  Country: US (occurrence: US)
  Receive Date: 20130904
  Receipt Date: 20130904
  Transmission Date: 20140515
  Serious: No
  Sender: FDA-Public Use
  Company Number: US-PFIZER INC-2013252107

PATIENT
  Age: 68 Year
  Sex: Male

DRUGS (3)
  1. VIAGRA [Suspect]
     Indication: ERECTILE DYSFUNCTION
     Dosage: 100 MG, 2X/WEEK
     Dates: start: 2013, end: 201303
  2. CIALIS [Suspect]
     Dosage: UNK
  3. MUSE [Suspect]
     Dosage: UNK

REACTIONS (1)
  - Drug ineffective [Unknown]
